FAERS Safety Report 7123622-6 (Version None)
Quarter: 2010Q4

REPORT INFORMATION
  Report Type: 
  Country: None (occurrence: None)
  Receive Date: 20101125
  Receipt Date: 20101115
  Transmission Date: 20110411
  Serious: No
  Sender: FDA-Public Use
  Company Number: JP-PFIZER INC-2010144197

PATIENT
  Age: 38 Year
  Sex: Female

DRUGS (2)
  1. ZITHROMAC SR [Suspect]
     Indication: TRACHEOBRONCHITIS MYCOPLASMAL
     Dosage: 2 G, 1X/DAY
     Route: 048
     Dates: start: 20101109, end: 20101109
  2. VALPROATE SODIUM [Concomitant]

REACTIONS (4)
  - ABDOMINAL PAIN [None]
  - DIARRHOEA [None]
  - HYPERVENTILATION [None]
  - HYPOAESTHESIA [None]
